FAERS Safety Report 6097845-1 (Version None)
Quarter: 2009Q1

REPORT INFORMATION
  Report Type: 
  Country: None (occurrence: None)
  Receive Date: 20090225
  Receipt Date: 20090211
  Transmission Date: 20090719
  Serious: Yes (Life-Threatening)
  Sender: FDA-Public Use
  Company Number: 2009AL000905

PATIENT
  Age: 31 Year
  Sex: Male

DRUGS (9)
  1. CITALOPRAM HYDROBROMIDE [Suspect]
     Indication: DEPRESSION
     Dosage: 20 MG; PO
     Route: 048
     Dates: start: 20081101
  2. LAMIVUDINE [Concomitant]
  3. TENOFOVIR [Concomitant]
  4. RITONAVIR [Concomitant]
  5. ATAZANAVIR SULFATE [Concomitant]
  6. TRUVADA [Concomitant]
  7. EFAVIRENZ [Concomitant]
  8. INHALERS [Concomitant]
  9. ALCOHOL [Concomitant]

REACTIONS (1)
  - SOMNAMBULISM [None]
